FAERS Safety Report 22349704 (Version 2)
Quarter: 2023Q2

REPORT INFORMATION
  Report Type: Spontaneous
  Country: JP (occurrence: JP)
  Receive Date: 20230522
  Receipt Date: 20230605
  Transmission Date: 20230721
  Serious: Yes (Life-Threatening, Hospitalization, Other)
  Sender: FDA-Public Use
  Company Number: JP-MACLEODS PHARMACEUTICALS US LTD-MAC2023041397

PATIENT

DRUGS (13)
  1. ACYCLOVIR [Suspect]
     Active Substance: ACYCLOVIR
     Indication: Urinary tract infection
     Dosage: UNK
     Route: 065
  2. ACYCLOVIR [Suspect]
     Active Substance: ACYCLOVIR
     Indication: Pneumonia aspiration
  3. LEVETIRACETAM [Suspect]
     Active Substance: LEVETIRACETAM
     Indication: Pneumonia aspiration
     Dosage: UNK
     Route: 065
  4. LEVETIRACETAM [Suspect]
     Active Substance: LEVETIRACETAM
     Indication: Urinary tract infection
  5. PHENYTOIN [Suspect]
     Active Substance: PHENYTOIN
     Indication: Pneumonia aspiration
     Dosage: UNK
     Route: 065
  6. PHENYTOIN [Suspect]
     Active Substance: PHENYTOIN
     Indication: Urinary tract infection
  7. VANCOMYCIN [Suspect]
     Active Substance: VANCOMYCIN
     Indication: Pneumonia aspiration
     Dosage: UNK
     Route: 065
  8. VANCOMYCIN [Suspect]
     Active Substance: VANCOMYCIN
     Indication: Urinary tract infection
  9. PIPERACILLIN SODIUM\TAZOBACTAM SODIUM [Concomitant]
     Active Substance: PIPERACILLIN SODIUM\TAZOBACTAM SODIUM
     Indication: Pneumonia aspiration
     Dosage: UNK
     Route: 065
  10. PIPERACILLIN SODIUM\TAZOBACTAM SODIUM [Concomitant]
     Active Substance: PIPERACILLIN SODIUM\TAZOBACTAM SODIUM
     Indication: Urinary tract infection
  11. AMPICILLIN SODIUM\SULBACTAM SODIUM [Concomitant]
     Active Substance: AMPICILLIN SODIUM\SULBACTAM SODIUM
     Indication: Pneumonia aspiration
     Dosage: UNK
     Route: 065
  12. AMPICILLIN SODIUM\SULBACTAM SODIUM [Concomitant]
     Active Substance: AMPICILLIN SODIUM\SULBACTAM SODIUM
     Indication: Urinary tract infection
  13. GANCICLOVIR [Concomitant]
     Active Substance: GANCICLOVIR
     Indication: Cytomegalovirus infection
     Dosage: UNK
     Route: 065

REACTIONS (7)
  - Drug reaction with eosinophilia and systemic symptoms [Recovering/Resolving]
  - Multiple organ dysfunction syndrome [Recovering/Resolving]
  - Pneumonia [Recovering/Resolving]
  - Drug eruption [Recovering/Resolving]
  - Pleural effusion [Recovering/Resolving]
  - Acute respiratory distress syndrome [Recovering/Resolving]
  - Acute kidney injury [Recovering/Resolving]
